FAERS Safety Report 18287790 (Version 1)
Quarter: 2020Q3

REPORT INFORMATION
  Report Type: Spontaneous
  Country: US (occurrence: US)
  Receive Date: 20200918
  Receipt Date: 20200918
  Transmission Date: 20201103
  Serious: Yes (Hospitalization)
  Sender: FDA-Public Use
  Company Number: None

PATIENT
  Age: 40 Year
  Sex: Male

DRUGS (1)
  1. STELARA [Suspect]
     Active Substance: USTEKINUMAB
     Dates: start: 20200408

REACTIONS (6)
  - Withdrawal syndrome [None]
  - Nausea [None]
  - Asthenia [None]
  - Vomiting [None]
  - Fatigue [None]
  - Dizziness [None]
